FAERS Safety Report 19310348 (Version 12)
Quarter: 2024Q2

REPORT INFORMATION
  Report Type: Spontaneous
  Country: US (occurrence: US)
  Receive Date: 20210526
  Receipt Date: 20240620
  Transmission Date: 20240716
  Serious: Yes (Other)
  Sender: FDA-Public Use
  Company Number: US-GLAXOSMITHKLINE-US2021AMR111289

PATIENT
  Age: 60 Year
  Sex: Female
  Weight: 68.9 kg

DRUGS (12)
  1. ZEJULA [Suspect]
     Active Substance: NIRAPARIB
     Indication: Ovarian cancer
     Dosage: 200 MG, QD
     Route: 048
     Dates: start: 20190712
  2. ZEJULA [Suspect]
     Active Substance: NIRAPARIB
     Dosage: 200 MG, QD
     Route: 048
  3. ZEJULA [Suspect]
     Active Substance: NIRAPARIB
     Dosage: 200 MG, QD
  4. ZEJULA [Suspect]
     Active Substance: NIRAPARIB
     Dosage: 200 MG, QD
  5. ZEJULA [Suspect]
     Active Substance: NIRAPARIB
     Dosage: 200 MG, QD
  6. ZEJULA [Suspect]
     Active Substance: NIRAPARIB
     Dosage: 200 MG, QD
  7. ZEJULA [Suspect]
     Active Substance: NIRAPARIB
     Dosage: 200 MG, QD
     Route: 048
  8. ZEJULA [Suspect]
     Active Substance: NIRAPARIB
     Dosage: 200 MG, QD
  9. ZEJULA [Suspect]
     Active Substance: NIRAPARIB
     Dosage: 200 MG, QD
  10. ZEJULA [Suspect]
     Active Substance: NIRAPARIB
     Indication: Ovarian cancer
     Dosage: 200 MG, QD (ONCE EVERY EVENING)
  11. ZEJULA [Suspect]
     Active Substance: NIRAPARIB
     Dosage: 100 MG, QD ( PO QD)
     Route: 048
  12. ZEJULA [Suspect]
     Active Substance: NIRAPARIB
     Dosage: 200 MG, QD

REACTIONS (30)
  - Diverticulitis [Unknown]
  - Leukaemia [Unknown]
  - Gastroenteritis viral [Unknown]
  - Oral pain [Not Recovered/Not Resolved]
  - Gastrooesophageal reflux disease [Unknown]
  - Condition aggravated [Unknown]
  - Breast reconstruction [Not Recovered/Not Resolved]
  - Oral discomfort [Unknown]
  - Herpes zoster [Unknown]
  - Neuralgia [Not Recovered/Not Resolved]
  - Coronavirus infection [Unknown]
  - Laboratory test abnormal [Not Recovered/Not Resolved]
  - Pain [Unknown]
  - Nausea [Unknown]
  - Trigeminal neuralgia [Unknown]
  - Blood pressure increased [Unknown]
  - Gingival pain [Not Recovered/Not Resolved]
  - Gallbladder disorder [Unknown]
  - Blood iron decreased [Unknown]
  - Illness [Recovering/Resolving]
  - Skin odour abnormal [Unknown]
  - Sleep disorder [Unknown]
  - Back pain [Unknown]
  - Arthralgia [Unknown]
  - Constipation [Unknown]
  - Hyperhidrosis [Unknown]
  - Blood magnesium increased [Unknown]
  - Arthralgia [Unknown]
  - Bone density abnormal [Unknown]
  - Product dose omission issue [Unknown]

NARRATIVE: CASE EVENT DATE: 20210526
